FAERS Safety Report 6270954-X (Version None)
Quarter: 2009Q3

REPORT INFORMATION
  Report Type: 
  Country: None (occurrence: None)
  Receive Date: 20090715
  Receipt Date: 20090630
  Transmission Date: 20100115
  Serious: Yes (Hospitalization)
  Sender: FDA-Public Use
  Company Number: 8048484

PATIENT
  Age: 51 Year
  Sex: Female
  Weight: 65.7 kg

DRUGS (5)
  1. XYZAL [Suspect]
     Indication: MULTIPLE ALLERGIES
     Dosage: 5 MG /D PO
     Route: 048
     Dates: end: 20090616
  2. XYZAL [Suspect]
     Indication: MULTIPLE ALLERGIES
     Dosage: 5 MG /D PO
     Route: 048
     Dates: start: 20090618, end: 20090620
  3. ADVAIR HFA [Concomitant]
  4. PROVENTIL /00139501/ [Concomitant]
  5. SEASONAL ALLERGIES, SEIZURES [Concomitant]

REACTIONS (6)
  - CONVULSION [None]
  - DIZZINESS [None]
  - NAUSEA [None]
  - PRESYNCOPE [None]
  - SYNCOPE [None]
  - VISION BLURRED [None]
